FAERS Safety Report 20084473 (Version 2)
Quarter: 2022Q1

REPORT INFORMATION
  Report Type: Other
  Country: KR (occurrence: KR)
  Receive Date: 20211118
  Receipt Date: 20220221
  Transmission Date: 20220423
  Serious: Yes (Other)
  Sender: FDA-Public Use
  Company Number: KR-BoehringerIngelheim-2021-BI-137268

PATIENT

DRUGS (7)
  1. ALTEPLASE [Suspect]
     Active Substance: ALTEPLASE
     Indication: Retinal haemorrhage
     Dosage: 50 MCGG/0.05 ML T
     Route: 050
  2. BEVACIZUMAB [Suspect]
     Active Substance: BEVACIZUMAB
     Indication: Retinal haemorrhage
     Route: 050
  3. BEVACIZUMAB [Suspect]
     Active Substance: BEVACIZUMAB
     Indication: Age-related macular degeneration
  4. RANIBIZUMAB [Suspect]
     Active Substance: RANIBIZUMAB
     Indication: Retinal haemorrhage
     Route: 050
  5. RANIBIZUMAB [Suspect]
     Active Substance: RANIBIZUMAB
     Indication: Age-related macular degeneration
  6. AFLIBERCEPT [Suspect]
     Active Substance: AFLIBERCEPT
     Indication: Retinal haemorrhage
     Route: 050
  7. AFLIBERCEPT [Suspect]
     Active Substance: AFLIBERCEPT
     Indication: Age-related macular degeneration

REACTIONS (3)
  - Rhegmatogenous retinal detachment [Unknown]
  - Off label use [Unknown]
  - Off label use [Unknown]
